FAERS Safety Report 13895825 (Version 2)
Quarter: 2017Q3

REPORT INFORMATION
  Report Type: Report from Study
  Country: DE (occurrence: DE)
  Receive Date: 20170823
  Receipt Date: 20170906
  Transmission Date: 20171127
  Serious: Yes (Hospitalization)
  Sender: FDA-Public Use
  Company Number: PHHY2017DE123292

PATIENT
  Sex: Male
  Weight: 89 kg

DRUGS (3)
  1. ARCOXIA [Concomitant]
     Active Substance: ETORICOXIB
     Indication: PSORIATIC ARTHROPATHY
     Dosage: 1 DF, PRN
     Route: 048
     Dates: start: 20150813
  2. VOBADERM [Concomitant]
     Indication: PSORIATIC ARTHROPATHY
     Dosage: UNK UNK, PRN
     Route: 061
     Dates: start: 20170302
  3. COSENTYX [Suspect]
     Active Substance: SECUKINUMAB
     Indication: PSORIATIC ARTHROPATHY
     Dosage: 150 MG, QMO
     Route: 058
     Dates: start: 20170406, end: 20170818

REACTIONS (1)
  - Colitis ulcerative [Recovering/Resolving]

NARRATIVE: CASE EVENT DATE: 20170731
